FAERS Safety Report 17915632 (Version 1)
Quarter: 2020Q2

REPORT INFORMATION
  Report Type: Spontaneous
  Country: US (occurrence: US)
  Receive Date: 20200619
  Receipt Date: 20200619
  Transmission Date: 20200714
  Serious: Yes (Other)
  Sender: FDA-Public Use
  Company Number: US-SUN PHARMACEUTICAL INDUSTRIES LTD-2020R1-250330

PATIENT
  Sex: Female

DRUGS (1)
  1. METOPROLOL. [Suspect]
     Active Substance: METOPROLOL
     Indication: PRODUCT USED FOR UNKNOWN INDICATION
     Dosage: UNK
     Route: 065
     Dates: start: 20200120

REACTIONS (8)
  - Psychomotor hyperactivity [Unknown]
  - Headache [Unknown]
  - Cough [Unknown]
  - Feeling abnormal [Unknown]
  - Pain [Unknown]
  - Gingival bleeding [Unknown]
  - Insomnia [Unknown]
  - Rash erythematous [Unknown]

NARRATIVE: CASE EVENT DATE: 2020
